FAERS Safety Report 9503776 (Version 2)
Quarter: 2013Q3

REPORT INFORMATION
  Report Type: Spontaneous
  Country: US (occurrence: None)
  Receive Date: 20130107
  Receipt Date: 20130724
  Transmission Date: 20140515
  Serious: No
  Sender: FDA-Public Use
  Company Number: PHEH2012US020035

PATIENT
  Age: 41 Year
  Sex: Male

DRUGS (1)
  1. GILENYA (FINGOLIMOD) CAPSULE, 0.5MG [Suspect]
     Route: 048
     Dates: start: 20120525, end: 20120622

REACTIONS (2)
  - Anger [None]
  - Irritability [None]
